FAERS Safety Report 9563274 (Version 1)
Quarter: 2013Q3

REPORT INFORMATION
  Report Type: Spontaneous
  Country: PK (occurrence: PK)
  Receive Date: 20130927
  Receipt Date: 20130927
  Transmission Date: 20140515
  Serious: Yes (Death, Hospitalization)
  Sender: FDA-Public Use
  Company Number: PHHY2013PK108162

PATIENT
  Age: 85 Year
  Sex: Male

DRUGS (2)
  1. DIOVAN [Suspect]
     Indication: BLOOD PRESSURE ABNORMAL
     Dosage: 80 MG, QD
     Route: 048
     Dates: start: 20120615, end: 20120913
  2. DIOVAN [Suspect]
     Dosage: 160 MG, QD
     Route: 048
     Dates: start: 20120914, end: 20121005

REACTIONS (7)
  - Death [Fatal]
  - Hyponatraemia [Unknown]
  - Depressed level of consciousness [Unknown]
  - Blood pressure decreased [Unknown]
  - Lethargy [Unknown]
  - Blood pressure inadequately controlled [Unknown]
  - Decreased appetite [Unknown]
